FAERS Safety Report 16817798 (Version 1)
Quarter: 2019Q3

REPORT INFORMATION
  Report Type: Spontaneous
  Country: MX (occurrence: MX)
  Receive Date: 20190917
  Receipt Date: 20190917
  Transmission Date: 20191005
  Serious: Yes (Other)
  Sender: FDA-Public Use
  Company Number: MX-ELI_LILLY_AND_COMPANY-MX201909006555

PATIENT
  Sex: Female

DRUGS (3)
  1. FORTEO [Suspect]
     Active Substance: TERIPARATIDE
     Indication: FRACTURED COCCYX
  2. FORTEO [Suspect]
     Active Substance: TERIPARATIDE
     Indication: FRACTURED SACRUM
     Dosage: 20 UG, UNKNOWN
     Route: 058
     Dates: start: 20190807, end: 20190909
  3. FORTEO [Suspect]
     Active Substance: TERIPARATIDE
     Indication: SPINAL FRACTURE

REACTIONS (2)
  - Off label use [Recovered/Resolved]
  - Aortic occlusion [Not Recovered/Not Resolved]

NARRATIVE: CASE EVENT DATE: 2019
